FAERS Safety Report 14076510 (Version 2)
Quarter: 2017Q4

REPORT INFORMATION
  Report Type: Report from Study
  Country: TR (occurrence: TR)
  Receive Date: 20171011
  Receipt Date: 20171215
  Transmission Date: 20180321
  Serious: Yes (Other)
  Sender: FDA-Public Use
  Company Number: TR-BAYER-2017-189625

PATIENT
  Age: 25 Year
  Sex: Female
  Weight: 83 kg

DRUGS (3)
  1. DIAZOMID [Suspect]
     Active Substance: ACETAZOLAMIDE
     Indication: GLAUCOMA
     Dosage: UNK UNK, QD
     Route: 048
  2. BETAFERON [Suspect]
     Active Substance: INTERFERON BETA-1B
     Indication: MULTIPLE SCLEROSIS
     Dosage: UNK UNK, QOD
     Route: 058
     Dates: start: 20170725, end: 20171115
  3. KALINOR [Suspect]
     Active Substance: POTASSIUM CITRATE
     Indication: HYPOKALAEMIA
     Dosage: UNK, QD
     Route: 048

REACTIONS (2)
  - Idiopathic intracranial hypertension [Recovering/Resolving]
  - CSF test abnormal [None]

NARRATIVE: CASE EVENT DATE: 2017
